FAERS Safety Report 8950879 (Version 2)
Quarter: 2012Q4

REPORT INFORMATION
  Report Type: Spontaneous
  Country: US (occurrence: None)
  Receive Date: 20121121
  Receipt Date: 20121128
  Transmission Date: 20130627
  Serious: Yes (Hospitalization)
  Sender: FDA-Public Use
  Company Number: 003-099

PATIENT
  Age: 76 Year
  Sex: Female

DRUGS (13)
  1. CROFAB [Suspect]
     Indication: VENOMOUS BITE
     Dosage: 26 vials total
     Dates: start: 20121101, end: 20121110
  2. CROFAB [Suspect]
     Indication: SNAKE BITE
     Dosage: 26 vials total
     Dates: start: 20121101, end: 20121110
  3. ZOSYN (PIPERACILLIN SODIUM, TAZOBACTAM SODIUM) [Concomitant]
  4. ZOFRAN (ONDANSETRON) [Concomitant]
  5. ULTRAM (TRAMADOL) [Concomitant]
  6. TYLENOL (ACETAMINOPHEN) [Concomitant]
  7. PROTONIX (PANTOPRAZOLE) [Concomitant]
  8. SUBLINGUAL NITROGLYCERIN (NITROGLYCERIN) [Concomitant]
  9. MYLANTA (ALUMINUM HYDROXIDE, MAGNESIUM HYDROXIDE, SIMETHICONE) [Concomitant]
  10. SOLU-CORTEF (HYDROCORTISONE SODIUM SUCCINATE) [Concomitant]
  11. LEVAQUIN (LEVOFLOXACIN) [Concomitant]
  12. DEMEROL (MEPERIDINE) [Concomitant]
  13. ATIVAN (LORAZEPAM) [Concomitant]

REACTIONS (4)
  - Activated partial thromboplastin time prolonged [None]
  - International normalised ratio increased [None]
  - Contusion [None]
  - Coagulopathy [None]
